FAERS Safety Report 11350696 (Version 1)
Quarter: 2015Q3

REPORT INFORMATION
  Report Type: Spontaneous
  Country: US (occurrence: None)
  Receive Date: 20150709
  Receipt Date: 20150709
  Transmission Date: 20151125
  Serious: Yes (Disabling)
  Sender: FDA-Public Use
  Company Number: PHEH2015US011930

PATIENT
  Age: 53 Year
  Sex: Female

DRUGS (1)
  1. GLEEVEC [Suspect]
     Active Substance: IMATINIB MESYLATE
     Indication: NEOPLASM MALIGNANT
     Route: 048
     Dates: start: 20090701

REACTIONS (5)
  - Arthralgia [None]
  - Pain in extremity [None]
  - Muscle spasms [None]
  - Contusion [None]
  - Musculoskeletal discomfort [None]

NARRATIVE: CASE EVENT DATE: 20140606
